FAERS Safety Report 7693630-5 (Version None)
Quarter: 2011Q3

REPORT INFORMATION
  Report Type: 
  Country: None (occurrence: None)
  Receive Date: 20110819
  Receipt Date: 20110810
  Transmission Date: 20111222
  Serious: Yes (Life-Threatening)
  Sender: FDA-Public Use
  Company Number: PHHY2011DE72944

PATIENT
  Sex: Male
  Weight: 62 kg

DRUGS (3)
  1. SANDIMMUNE [Suspect]
     Indication: NEPHROTIC SYNDROME
     Dosage: 175 MG, BID
     Route: 048
     Dates: start: 20110730, end: 20110730
  2. PREDNISOLONE [Concomitant]
     Indication: NEPHROTIC SYNDROME
     Dosage: 25 MG, 3 TIMES A DAY
     Route: 048
     Dates: start: 20110730
  3. LASIX [Concomitant]
     Indication: OLIGURIA
     Dosage: 60 MG
     Route: 048
     Dates: start: 20110730

REACTIONS (11)
  - BLOOD CREATININE INCREASED [None]
  - WHITE BLOOD CELL COUNT INCREASED [None]
  - C-REACTIVE PROTEIN INCREASED [None]
  - OLIGURIA [None]
  - BLOOD UREA INCREASED [None]
  - MYALGIA [None]
  - HYPERTENSION [None]
  - HEADACHE [None]
  - WEIGHT INCREASED [None]
  - PYREXIA [None]
  - ABDOMINAL PAIN UPPER [None]
